FAERS Safety Report 21472907 (Version 1)
Quarter: 2022Q4

REPORT INFORMATION
  Report Type: Report from Study
  Country: US (occurrence: US)
  Receive Date: 20221018
  Receipt Date: 20221018
  Transmission Date: 20230113
  Serious: Yes (Death, Hospitalization, Other)
  Sender: FDA-Public Use
  Company Number: US-BRISTOL-MYERS SQUIBB COMPANY-2022-095458

PATIENT
  Age: 58 Year
  Sex: Male
  Weight: 93.3 kg

DRUGS (3)
  1. LENALIDOMIDE [Suspect]
     Active Substance: LENALIDOMIDE
     Indication: Mantle cell lymphoma
     Dosage: DAILY
     Route: 048
     Dates: start: 20200727
  2. RITUXIMAB [Suspect]
     Active Substance: RITUXIMAB
     Indication: Mantle cell lymphoma
     Dosage: 90 MINUTES
     Route: 042
     Dates: start: 20200721
  3. VENETOCLAX [Suspect]
     Active Substance: VENETOCLAX
     Indication: Mantle cell lymphoma
     Dosage: 400 UNITS NOT SPECIFIED, DAILY
     Route: 048
     Dates: start: 20200728, end: 20220228

REACTIONS (2)
  - Upper respiratory tract infection [Recovered/Resolved]
  - Myelodysplastic syndrome [Fatal]

NARRATIVE: CASE EVENT DATE: 20220819
